FAERS Safety Report 24716054 (Version 1)
Quarter: 2024Q4

REPORT INFORMATION
  Report Type: Spontaneous
  Country: DE (occurrence: DE)
  Receive Date: 20241210
  Receipt Date: 20241210
  Transmission Date: 20250115
  Serious: Yes (Other)
  Sender: BOEHRINGER INGELHEIM
  Company Number: None

PATIENT
  Sex: Male
  Weight: 78 kg

DRUGS (1)
  1. JARDIANCE [Suspect]
     Active Substance: EMPAGLIFLOZIN
     Indication: Type 2 diabetes mellitus
     Dosage: DAILY DOSE: 10
     Dates: start: 202406, end: 202411

REACTIONS (3)
  - Dupuytren^s contracture [Not Recovered/Not Resolved]
  - Anosmia [Recovered/Resolved]
  - Ageusia [Recovered/Resolved]
